FAERS Safety Report 6278018-6 (Version None)
Quarter: 2009Q3

REPORT INFORMATION
  Report Type: 
  Country: None (occurrence: None)
  Receive Date: 20090722
  Receipt Date: 20090624
  Transmission Date: 20100115
  Serious: Yes (Other)
  Sender: FDA-Public Use
  Company Number: PHHY2009BR11684

PATIENT
  Sex: Male
  Weight: 87 kg

DRUGS (2)
  1. EXELON [Suspect]
     Indication: DEMENTIA
     Dosage: 9MG/5CM2, ONE PATCH DAILY
     Route: 062
  2. EXELON [Suspect]
     Dosage: 18 MG/10CM2, ONE PATCH DAILY
     Route: 062

REACTIONS (8)
  - APPLICATION SITE ERYTHEMA [None]
  - APPLICATION SITE HYPERSENSITIVITY [None]
  - APPLICATION SITE PAPULES [None]
  - APPLICATION SITE SWELLING [None]
  - BLISTER [None]
  - ERYTHEMA [None]
  - PRURITUS [None]
  - RASH MACULAR [None]
